FAERS Safety Report 19004513 (Version 2)
Quarter: 2021Q4

REPORT INFORMATION
  Report Type: Other
  Country: JP (occurrence: JP)
  Receive Date: 20210312
  Receipt Date: 20211001
  Transmission Date: 20220303
  Serious: Yes (Other)
  Sender: FDA-Public Use
  Company Number: JP-ROCHE-2783853

PATIENT
  Age: 57 Year
  Sex: Male

DRUGS (12)
  1. RIBAVIRIN [Suspect]
     Active Substance: RIBAVIRIN
     Indication: Hepatitis C
     Route: 065
  2. MYCOPHENOLATE MOFETIL [Suspect]
     Active Substance: MYCOPHENOLATE MOFETIL
     Indication: Prophylaxis against graft versus host disease
     Route: 065
  3. TACROLIMUS [Suspect]
     Active Substance: TACROLIMUS
     Indication: Prophylaxis against graft versus host disease
     Route: 065
  4. IDARUBICIN [Concomitant]
     Active Substance: IDARUBICIN
     Indication: Acute myeloid leukaemia
  5. CYTARABINE [Concomitant]
     Active Substance: CYTARABINE
     Indication: Acute myeloid leukaemia
  6. DAUNORUBICIN [Concomitant]
     Active Substance: DAUNORUBICIN
     Indication: Acute myeloid leukaemia
  7. GLECAPREVIR\PIBRENTASVIR [Concomitant]
     Active Substance: GLECAPREVIR\PIBRENTASVIR
     Indication: Hepatitis C
  8. FLUDARABINE [Concomitant]
     Active Substance: FLUDARABINE PHOSPHATE
     Indication: Acute myeloid leukaemia
  9. BUSULFAN [Concomitant]
     Active Substance: BUSULFAN
     Indication: Acute myeloid leukaemia
  10. MELPHALAN [Concomitant]
     Active Substance: MELPHALAN
     Indication: Acute myeloid leukaemia
  11. METHYLPREDNISOLONE [Concomitant]
     Active Substance: METHYLPREDNISOLONE
     Indication: Acute graft versus host disease
  12. VORICONAZOLE [Concomitant]
     Active Substance: VORICONAZOLE
     Indication: Antifungal prophylaxis

REACTIONS (2)
  - Renal impairment [Recovered/Resolved]
  - Hepatitis C [Recovered/Resolved]
